FAERS Safety Report 5238882-6 (Version None)
Quarter: 2007Q1

REPORT INFORMATION
  Report Type: 
  Country: None (occurrence: None)
  Receive Date: 20070215
  Receipt Date: 20070206
  Transmission Date: 20070707
  Serious: Yes (Other)
  Sender: FDA-Public Use
  Company Number: US-PFIZER INC-2007009938

PATIENT
  Age: 45 Year
  Sex: Female

DRUGS (3)
  1. ZOLOFT [Suspect]
     Indication: DEPRESSION
     Dates: start: 19920101, end: 20061101
  2. XANAX [Suspect]
  3. PAXIL [Suspect]
     Indication: DEPRESSION

REACTIONS (1)
  - LEUKOENCEPHALOMYELITIS [None]
